FAERS Safety Report 4424819-6 (Version None)
Quarter: 2004Q3

REPORT INFORMATION
  Report Type: 
  Country: None (occurrence: None)
  Receive Date: 20040809
  Receipt Date: 20040728
  Transmission Date: 20050211
  Serious: Yes (Death)
  Sender: FDA-Public Use
  Company Number: JP-JNJFOC-20040800384

PATIENT
  Age: 72 Year
  Sex: Female

DRUGS (1)
  1. LEUSTATIN [Suspect]
     Indication: T-CELL CHRONIC LYMPHOCYTIC LEUKAEMIA
     Dates: start: 20040714, end: 20040720

REACTIONS (2)
  - HEPATIC FAILURE [None]
  - RENAL FAILURE [None]
